FAERS Safety Report 22974617 (Version 2)
Quarter: 2023Q4

REPORT INFORMATION
  Report Type: Report from Study
  Country: MA (occurrence: MA)
  Receive Date: 20230923
  Receipt Date: 20231020
  Transmission Date: 20240110
  Serious: Yes (Hospitalization)
  Sender: FDA-Public Use
  Company Number: MA-002147023-NVSC2023MA199969

PATIENT
  Age: 42 Year
  Sex: Female

DRUGS (1)
  1. TASIGNA [Suspect]
     Active Substance: NILOTINIB
     Indication: Leukaemia
     Dosage: 200 MG
     Route: 048

REACTIONS (5)
  - Fatigue [Unknown]
  - Illness [Unknown]
  - Contusion [Unknown]
  - Epistaxis [Unknown]
  - Gingival bleeding [Unknown]
